FAERS Safety Report 24023861 (Version 2)
Quarter: 2024Q2

REPORT INFORMATION
  Report Type: Spontaneous
  Country: SE (occurrence: SE)
  Receive Date: 20240627
  Receipt Date: 20240627
  Transmission Date: 20240716
  Serious: No
  Sender: FDA-Public Use
  Company Number: SE-ROCHE-3574651

PATIENT
  Age: 84 Year
  Sex: Female

DRUGS (2)
  1. VABYSMO [Suspect]
     Active Substance: FARICIMAB\FARICIMAB-SVOA
     Indication: Age-related macular degeneration
     Dosage: LEFT EYE
     Route: 065
     Dates: start: 20240208, end: 20240514
  2. VABYSMO [Suspect]
     Active Substance: FARICIMAB\FARICIMAB-SVOA
     Dosage: RIGHT EYE
     Route: 065
     Dates: start: 20240319, end: 20240319

REACTIONS (3)
  - Iritis [Recovering/Resolving]
  - Vitritis [Recovering/Resolving]
  - Off label use [Unknown]

NARRATIVE: CASE EVENT DATE: 20240515
